FAERS Safety Report 7375199-8 (Version None)
Quarter: 2011Q1

REPORT INFORMATION
  Report Type: 
  Country: None (occurrence: None)
  Receive Date: 20110325
  Receipt Date: 20110318
  Transmission Date: 20110831
  Serious: Yes (Death)
  Sender: FDA-Public Use
  Company Number: FR-ROCHE-766548

PATIENT
  Age: 77 Year
  Sex: Female

DRUGS (8)
  1. COUMADIN [Concomitant]
  2. TAMIFLU [Suspect]
     Dosage: DISCONTINUED
     Route: 048
     Dates: start: 20110203
  3. KEPPRA [Concomitant]
  4. ALDACTONE [Concomitant]
  5. FUROSEMIDE [Concomitant]
  6. ACETAMINOPHEN [Suspect]
     Dosage: DISCONTINUED
     Route: 048
     Dates: start: 20110203
  7. DIFFU K [Concomitant]
  8. AMIODARONE HCL [Concomitant]

REACTIONS (1)
  - HEPATITIS FULMINANT [None]
